FAERS Safety Report 20740583 (Version 1)
Quarter: 2022Q2

REPORT INFORMATION
  Report Type: Report from Study
  Country: BR (occurrence: BR)
  Receive Date: 20220422
  Receipt Date: 20220422
  Transmission Date: 20220720
  Serious: Yes (Life-Threatening, Hospitalization, Other)
  Sender: FDA-Public Use
  Company Number: BR-BRISTOL-MYERS SQUIBB COMPANY-2022-019923

PATIENT
  Age: 74 Year
  Sex: Male
  Weight: 96 kg

DRUGS (12)
  1. ENZALUTAMIDE [Suspect]
     Active Substance: ENZALUTAMIDE
     Indication: Prostate cancer metastatic
     Dosage: MG
     Dates: start: 20181114, end: 20181114
  2. ENZALUTAMIDE [Suspect]
     Active Substance: ENZALUTAMIDE
     Dosage: MG
     Dates: start: 20211203, end: 20211205
  3. NIVOLUMAB\RELATLIMAB-RMBW [Suspect]
     Active Substance: NIVOLUMAB\RELATLIMAB-RMBW
     Dates: start: 20190322, end: 20190322
  4. PANTOPRAZOLE [Concomitant]
     Active Substance: PANTOPRAZOLE
     Indication: Product used for unknown indication
     Dates: start: 20181229
  5. COLAGEN [Concomitant]
     Indication: Product used for unknown indication
     Route: 048
     Dates: start: 2008
  6. MUCOPOLYSACCHARIDE POLYSULPHATE [Concomitant]
     Indication: Product used for unknown indication
     Dosage: 1 UNIT NOT SPECIFIED
     Route: 061
     Dates: start: 20190111
  7. INSULIN LISPRO [Concomitant]
     Active Substance: INSULIN LISPRO
     Indication: Adverse event
     Route: 058
     Dates: start: 20190110
  8. INSULIN LISPRO [Concomitant]
     Active Substance: INSULIN LISPRO
     Route: 058
     Dates: start: 20210814, end: 20211202
  9. DOMPERIDONE [Concomitant]
     Active Substance: DOMPERIDONE
     Indication: Adverse event
     Route: 048
     Dates: start: 20190828
  10. DIPYRONE [Concomitant]
     Active Substance: DIPYRONE
     Indication: Product used for unknown indication
     Route: 048
     Dates: start: 201906
  11. METFORMIN HYDROCHLORIDE [Concomitant]
     Active Substance: METFORMIN HYDROCHLORIDE
     Indication: Adverse event
     Route: 048
     Dates: start: 20200602
  12. DEGLUDECA INSULIN [Concomitant]
     Indication: Adverse event
     Route: 058
     Dates: start: 20210814, end: 20211202

REACTIONS (1)
  - Hyperglycaemia [Recovered/Resolved]

NARRATIVE: CASE EVENT DATE: 20211203
